FAERS Safety Report 13495077 (Version 5)
Quarter: 2019Q4

REPORT INFORMATION
  Report Type: Report from Study
  Country: US (occurrence: US)
  Receive Date: 20170428
  Receipt Date: 20191014
  Transmission Date: 20200122
  Serious: Yes (Other)
  Sender: FDA-Public Use
  Company Number: US-ROCHE-1924563

PATIENT
  Age: 60 Year
  Sex: Male
  Weight: 72.7 kg

DRUGS (3)
  1. VISMODEGIB. [Suspect]
     Active Substance: VISMODEGIB
     Route: 048
     Dates: start: 20160621
  2. VISMODEGIB. [Suspect]
     Active Substance: VISMODEGIB
     Route: 048
     Dates: start: 20161214, end: 20170324
  3. VISMODEGIB. [Suspect]
     Active Substance: VISMODEGIB
     Indication: CHRONIC GRAFT VERSUS HOST DISEASE
     Route: 048
     Dates: start: 20160121

REACTIONS (3)
  - Hypophosphataemia [Unknown]
  - Anaphylactic reaction [Unknown]
  - Dysphagia [Unknown]
